FAERS Safety Report 24080204 (Version 1)
Quarter: 2024Q3

REPORT INFORMATION
  Report Type: Report from Study
  Country: US (occurrence: US)
  Receive Date: 20240711
  Receipt Date: 20240711
  Transmission Date: 20241017
  Serious: Yes (Hospitalization, Other)
  Sender: ABBVIE
  Company Number: US-ABBVIE-5832584

PATIENT

DRUGS (1)
  1. CREON [Suspect]
     Active Substance: PANCRELIPASE AMYLASE\PANCRELIPASE LIPASE\PANCRELIPASE PROTEASE
     Indication: Pancreatic failure
     Dosage: 4 CAPSULES EACH TIME HE EATS, WHICH IS 12 A DAY
     Route: 048

REACTIONS (7)
  - Hepatic cirrhosis [Unknown]
  - Selective IgG subclass deficiency [Unknown]
  - Wrong technique in product usage process [Unknown]
  - Hospitalisation [Unknown]
  - Pancreatic failure [Unknown]
  - Pancreatic disorder [Unknown]
  - Incorrect dose administered [Unknown]

NARRATIVE: CASE EVENT DATE: 20200101
